FAERS Safety Report 13507534 (Version 1)
Quarter: 2017Q2

REPORT INFORMATION
  Report Type: Spontaneous
  Country: US (occurrence: US)
  Receive Date: 20170502
  Receipt Date: 20170502
  Transmission Date: 20170830
  Serious: No
  Sender: FDA-Public Use
  Company Number: None

PATIENT
  Age: 52 Year
  Sex: Male
  Weight: 76.66 kg

DRUGS (1)
  1. TALTZ [Suspect]
     Active Substance: IXEKIZUMAB
     Indication: PSORIASIS
     Dosage: DOSE - 80 MG/ML?FREQUENCY - Q 4 WKS
     Route: 058

REACTIONS (2)
  - Therapy cessation [None]
  - Unevaluable event [None]

NARRATIVE: CASE EVENT DATE: 20170501
